FAERS Safety Report 6769667-7 (Version None)
Quarter: 2010Q2

REPORT INFORMATION
  Report Type: 
  Country: None (occurrence: None)
  Receive Date: 20100603
  Receipt Date: 20100527
  Transmission Date: 20101027
  Serious: Yes (Hospitalization)
  Sender: FDA-Public Use
  Company Number: 2010SP012262

PATIENT
  Age: 74 Year
  Sex: Female
  Weight: 75 kg

DRUGS (12)
  1. MIRTAZAPINE [Suspect]
     Indication: LEUKOENCEPHALOPATHY
     Dosage: 15 MG; BID; PO
     Route: 048
     Dates: start: 20091028, end: 20100105
  2. LARIAM [Suspect]
     Indication: LEUKOENCEPHALOPATHY
     Dosage: 250 MG; QW; PO
     Route: 048
     Dates: start: 20091028, end: 20100104
  3. PANTOPRAZOLE SODIUM [Suspect]
     Indication: REFLUX OESOPHAGITIS
     Dosage: 40 MG; BID; PO
     Route: 048
     Dates: start: 20090601
  4. TORSEMIDE [Suspect]
     Indication: RENAL FAILURE CHRONIC
     Dosage: 10 MG; QD; PO
     Route: 048
     Dates: start: 20090601
  5. ISCOVER (CLOPIDOGREL SULFATE) (75 MG) [Suspect]
     Indication: CORONARY ARTERY DISEASE
     Dosage: 75 MG; QD; PO
     Route: 048
     Dates: start: 20090901
  6. PREDNISOLONE [Suspect]
     Indication: HASHIMOTO'S ENCEPHALOPATHY
     Dosage: 5 MG; QD; PO
     Route: 048
     Dates: start: 20091001
  7. ACETYLSALICYLIC ACID (OTHER MFR) (ACETYLSALICYLIC ACID /00002701/) [Suspect]
     Indication: CORONARY ARTERY DISEASE
     Dosage: 100 MG; QD; PO
     Route: 048
     Dates: start: 20090901
  8. DIGITOXIN [Concomitant]
  9. CALCILAC KT [Concomitant]
  10. SPIRONOLACTONE [Concomitant]
  11. KARVEA [Concomitant]
  12. ACTRAPID [Concomitant]

REACTIONS (7)
  - DRUG INTERACTION [None]
  - ENDOCARDITIS [None]
  - ERYTHEMA INFECTIOSUM [None]
  - LEUKOPENIA [None]
  - MYELODYSPLASTIC SYNDROME [None]
  - PYREXIA [None]
  - RHONCHI [None]
